FAERS Safety Report 17028598 (Version 2)
Quarter: 2021Q4

REPORT INFORMATION
  Report Type: Spontaneous
  Country: US (occurrence: US)
  Receive Date: 20191113
  Receipt Date: 20211231
  Transmission Date: 20220303
  Serious: Yes (Life-Threatening, Other)
  Sender: FDA-Public Use
  Company Number: US-SUN PHARMACEUTICAL INDUSTRIES LTD-2019R1-227207

PATIENT
  Age: 10 Year
  Sex: Male

DRUGS (7)
  1. ALBUTEROL [Suspect]
     Active Substance: ALBUTEROL
     Indication: Bronchospasm
     Dosage: 20 MG PER HOUR (NEBULIZATION)
     Route: 065
  2. METHYLPREDNISOLONE [Suspect]
     Active Substance: METHYLPREDNISOLONE
     Indication: Bronchospasm
     Dosage: UNK
     Route: 042
  3. MAGNESIUM [Suspect]
     Active Substance: MAGNESIUM
     Indication: Bronchospasm
     Dosage: UNK
     Route: 065
  4. TERBUTALINE [Suspect]
     Active Substance: TERBUTALINE
     Indication: Bronchospasm
     Dosage: 4 MICROG/KG/MIN
     Route: 065
  5. KETAMINE [Suspect]
     Active Substance: KETAMINE
     Indication: Bronchospasm
     Dosage: UNK
     Route: 065
  6. THEOPHYLLINE [Suspect]
     Active Substance: THEOPHYLLINE
     Indication: Product used for unknown indication
     Dosage: 1.6 MG/KG/HOUR
     Route: 065
  7. IPRATROPIUM BROMIDE [Suspect]
     Active Substance: IPRATROPIUM BROMIDE
     Indication: Product used for unknown indication
     Dosage: UNK
     Route: 065

REACTIONS (2)
  - Drug resistance [Unknown]
  - Wolff-Parkinson-White syndrome [Unknown]
